FAERS Safety Report 21911075 (Version 1)
Quarter: 2023Q1

REPORT INFORMATION
  Report Type: Spontaneous
  Country: US (occurrence: US)
  Receive Date: 20230125
  Receipt Date: 20230125
  Transmission Date: 20230417
  Serious: Yes (Death, Life-Threatening, Hospitalization, Other)
  Sender: FDA-Public Use
  Company Number: US-AMGEN-USASP2023010279

PATIENT
  Age: 78 Year
  Sex: Male

DRUGS (3)
  1. PROLIA [Suspect]
     Active Substance: DENOSUMAB
     Indication: Osteoporosis prophylaxis
     Dosage: UNK
     Route: 065
  2. AMLODIPINE [Concomitant]
     Active Substance: AMLODIPINE BESYLATE
     Indication: Product used for unknown indication
     Dosage: UNK
     Route: 065
  3. ENZALUTAMIDE [Concomitant]
     Active Substance: ENZALUTAMIDE
     Indication: Product used for unknown indication
     Dosage: UNK
     Route: 065

REACTIONS (21)
  - Cardiogenic shock [Unknown]
  - Hypocalcaemia [Unknown]
  - Death [Fatal]
  - Vasoplegia syndrome [Unknown]
  - Ventricular hypokinesia [Unknown]
  - Echocardiogram [Unknown]
  - Hyperparathyroidism [Unknown]
  - Vitamin D deficiency [Unknown]
  - Cardiomegaly [Unknown]
  - Systolic dysfunction [Unknown]
  - Hyperphosphataemia [Unknown]
  - Acute kidney injury [Unknown]
  - Leukocytosis [Unknown]
  - Neutrophilia [Unknown]
  - Metabolic acidosis [Unknown]
  - Troponin increased [Unknown]
  - Brain natriuretic peptide increased [Unknown]
  - Decreased appetite [Unknown]
  - Nausea [Unknown]
  - Vomiting [Unknown]
  - Asthenia [Unknown]
